FAERS Safety Report 5402735-0 (Version None)
Quarter: 2007Q3

REPORT INFORMATION
  Report Type: 
  Country: None (occurrence: None)
  Receive Date: 20070730
  Receipt Date: 20070730
  Transmission Date: 20080115
  Serious: Yes (Other)
  Sender: FDA-Public Use
  Company Number: None

PATIENT
  Sex: Female

DRUGS (2)
  1. PEG-INTRON [Suspect]
     Indication: HEPATITIS C
     Dosage: 0.5 ML WEEKLY SQ
     Route: 058
     Dates: start: 20070226, end: 20070723
  2. RIBAVIRIN [Suspect]
     Indication: HEPATITIS C
     Dosage: 600MG -3 CAPS- 2X DAILY PO
     Route: 048

REACTIONS (4)
  - HEADACHE [None]
  - HYPOAESTHESIA [None]
  - TREMOR [None]
  - VISION BLURRED [None]
